FAERS Safety Report 14035228 (Version 2)
Quarter: 2017Q4

REPORT INFORMATION
  Report Type: Other
  Country: US (occurrence: US)
  Receive Date: 20171003
  Receipt Date: 20171012
  Transmission Date: 20180321
  Serious: Yes (Death, Hospitalization, Other)
  Sender: FDA-Public Use
  Company Number: US-INTERCEPT-PMOCA2017000978

PATIENT

DRUGS (37)
  1. ATARAX [Concomitant]
     Active Substance: HYDROXYZINE HYDROCHLORIDE
     Dosage: 25 MG, Q4H PRN
  2. LOPRESSOR [Concomitant]
     Active Substance: METOPROLOL TARTRATE
     Dosage: 50 MG, BID
  3. NALTREXONE [Concomitant]
     Active Substance: NALTREXONE
     Dosage: 50 MG, QD
     Route: 048
  4. THERATEARS [Concomitant]
     Active Substance: CARBOXYMETHYLCELLULOSE SODIUM
     Dosage: 1 GTT, BID BOTH EYES
     Route: 047
  5. OFRAN                              /00955301/ [Concomitant]
     Dosage: 4 MG, 6H PRN
     Route: 048
  6. NORVASC [Concomitant]
     Active Substance: AMLODIPINE BESYLATE
     Dosage: 7.5 MG, QD
     Route: 048
  7. VITAMIN D3 [Concomitant]
     Active Substance: CHOLECALCIFEROL
     Dosage: 200 UT, QD
     Route: 048
  8. VITAMIN B12 [Concomitant]
     Active Substance: CYANOCOBALAMIN
     Dosage: 1000 MCG, QD
     Route: 048
  9. PAMELOR [Concomitant]
     Active Substance: NORTRIPTYLINE HYDROCHLORIDE
     Dosage: 75 MG, NIGHTLY
     Route: 048
  10. DEXTROSE IN WATER [Concomitant]
     Active Substance: DEXTROSE\WATER
     Dosage: 12.5 MG, 10 MIN PRN
     Route: 042
  11. HUMALOG [Concomitant]
     Active Substance: INSULIN LISPRO
     Dosage: 0-2.5 UNITS NIGHTLY
     Route: 058
  12. ATIVAN [Concomitant]
     Active Substance: LORAZEPAM
     Dosage: 1 MG, 6H NIGHTLY
     Route: 048
  13. OCALIVA [Suspect]
     Active Substance: OBETICHOLIC ACID
     Indication: BILIARY CIRRHOSIS PRIMARY
     Dosage: 5 MG, QD
     Route: 048
     Dates: start: 20170313
  14. VITAMIN D3 [Concomitant]
     Active Substance: CHOLECALCIFEROL
     Dosage: 2000 UT, UNK
     Route: 048
  15. DIFLUCAN [Concomitant]
     Active Substance: FLUCONAZOLE
     Dosage: 200 MG, QD
     Route: 048
  16. MAG-OX [Concomitant]
     Active Substance: MAGNESIUM OXIDE
     Dosage: 400 MG, QD
     Route: 048
  17. REMERON [Concomitant]
     Active Substance: MIRTAZAPINE
     Dosage: 15 MG, NIGHTLY
     Route: 048
  18. THERAGRAN                          /01824401/ [Concomitant]
     Dosage: 1 DF, QD
     Route: 048
  19. ACTIGALL [Concomitant]
     Active Substance: URSODIOL
     Dosage: 600 MG, AM
     Route: 048
  20. COUMADIN [Suspect]
     Active Substance: WARFARIN SODIUM
  21. VITAMIN D2 + CALCIUM               /07511201/ [Concomitant]
     Dosage: 1 DF, QD
     Route: 048
  22. DIFLUCAN [Concomitant]
     Active Substance: FLUCONAZOLE
     Dosage: 100 MG, NIGHTLY
     Route: 048
  23. LASIX [Concomitant]
     Active Substance: FUROSEMIDE
     Dosage: 20 MG, BID
     Route: 048
  24. GLUCAGON. [Concomitant]
     Active Substance: GLUCAGON
     Dosage: 1 MG FO CRITICALLY LOW BLOOD SUGAR
     Route: 058
  25. NOVOLOG [Concomitant]
     Active Substance: INSULIN ASPART
     Dosage: 3-5 UNITS TID AC
     Route: 058
  26. PROGRAF [Concomitant]
     Active Substance: TACROLIMUS\TACROLIMUS ANHYDROUS
     Dosage: 0.5 MG, BID
     Route: 048
  27. SYSTANE (HYPROMELLOSE 2910 (4000 MPA.S)) [Concomitant]
     Active Substance: HYPROMELLOSE 2910 (4000 MPA.S)
     Dosage: UNK
     Route: 047
  28. HUMALOG [Concomitant]
     Active Substance: INSULIN LISPRO
     Dosage: 1-5 UNITS TID AC
     Route: 058
  29. ACTIGALL [Concomitant]
     Active Substance: URSODIOL
     Dosage: 300 MG, PM
     Route: 048
  30. DELTASONE [Concomitant]
     Active Substance: PREDNISONE
     Dosage: 5 MG, QD
     Route: 048
  31. TUMS 500 CALCIUM [Concomitant]
     Dosage: 500 MG, QD
     Route: 048
  32. MIRALAX [Concomitant]
     Active Substance: POLYETHYLENE GLYCOL 3350
     Dosage: 17 G, QD PRN
     Route: 048
  33. NEURONTIN [Concomitant]
     Active Substance: GABAPENTIN
     Dosage: 100 MG, BID
     Route: 048
  34. ASPIRIN. [Concomitant]
     Active Substance: ASPIRIN
     Dosage: 81 MG, QD
     Route: 048
  35. LANTUS [Concomitant]
     Active Substance: INSULIN GLARGINE
     Dosage: 18 UT, NIGHTLY
     Route: 058
  36. PRILOSEC [Concomitant]
     Active Substance: OMEPRAZOLE MAGNESIUM
     Dosage: 40 MG, QD
     Route: 048
  37. PROGRAF [Concomitant]
     Active Substance: TACROLIMUS\TACROLIMUS ANHYDROUS
     Dosage: 0.5 MG, QD
     Route: 048

REACTIONS (7)
  - Renal impairment [Unknown]
  - Weight decreased [Unknown]
  - Hip fracture [Unknown]
  - Dyspnoea exertional [Unknown]
  - Mediastinal haematoma [Unknown]
  - Fall [Unknown]
  - Internal haemorrhage [Fatal]
